FAERS Safety Report 26051246 (Version 1)
Quarter: 2025Q4

REPORT INFORMATION
  Report Type: Spontaneous
  Country: JP (occurrence: JP)
  Receive Date: 20251117
  Receipt Date: 20251117
  Transmission Date: 20260118
  Serious: Yes (Hospitalization, Other)
  Sender: ASTELLAS
  Company Number: JP-ASTELLAS-2025-AER-061872

PATIENT
  Age: 8 Decade
  Sex: Male
  Weight: 64 kg

DRUGS (4)
  1. VYLOY [Suspect]
     Active Substance: ZOLBETUXIMAB-CLZB
     Indication: Oesophageal adenocarcinoma
     Route: 065
  2. FLUOROURACIL [Concomitant]
     Active Substance: FLUOROURACIL
     Indication: Oesophageal adenocarcinoma
     Route: 065
  3. LEVOLEUCOVORIN CALCIUM [Concomitant]
     Active Substance: LEVOLEUCOVORIN CALCIUM
     Indication: Oesophageal adenocarcinoma
     Route: 065
  4. OXALIPLATIN [Concomitant]
     Active Substance: OXALIPLATIN
     Indication: Oesophageal adenocarcinoma
     Route: 065

REACTIONS (7)
  - Febrile neutropenia [Unknown]
  - Ascites [Unknown]
  - Gastritis [Recovering/Resolving]
  - Blood albumin decreased [Recovering/Resolving]
  - Nausea [Unknown]
  - Decreased appetite [Unknown]
  - Oedema peripheral [Unknown]
